FAERS Safety Report 4917938-9 (Version None)
Quarter: 2006Q1

REPORT INFORMATION
  Report Type: 
  Country: None (occurrence: None)
  Receive Date: 20060221
  Receipt Date: 20051013
  Transmission Date: 20060701
  Serious: Yes (Hospitalization)
  Sender: FDA-Public Use
  Company Number: US-MERCK-0510USA07025

PATIENT
  Age: 81 Year
  Sex: Male
  Weight: 92 kg

DRUGS (5)
  1. VIOXX [Suspect]
     Indication: BACK PAIN
     Route: 048
     Dates: start: 20001201, end: 20040821
  2. VIOXX [Suspect]
     Route: 048
     Dates: start: 20040908
  3. ASPIRIN [Concomitant]
     Route: 065
  4. FLOMAX (MORNIFLUMATE) [Concomitant]
     Route: 065
  5. DYAZIDE [Concomitant]
     Route: 065

REACTIONS (5)
  - ACUTE MYOCARDIAL INFARCTION [None]
  - CORONARY ARTERY DISEASE [None]
  - CORONARY ARTERY OCCLUSION [None]
  - PULMONARY CONGESTION [None]
  - RENAL FAILURE CHRONIC [None]
